FAERS Safety Report 19740473 (Version 1)
Quarter: 2021Q3

REPORT INFORMATION
  Report Type: Spontaneous
  Country: CN (occurrence: CN)
  Receive Date: 20210824
  Receipt Date: 20210824
  Transmission Date: 20211014
  Serious: Yes (Other)
  Sender: FDA-Public Use
  Company Number: CN-009507513-2108CHN005689

PATIENT
  Age: 58 Year
  Sex: Male

DRUGS (15)
  1. RAMUCIRUMAB [Suspect]
     Active Substance: RAMUCIRUMAB
     Indication: CHOLANGIOCARCINOMA
     Dosage: 500MG, ON DAY 1, 21D AS 1 CYCLE FOR 2 CYCLES
     Route: 042
     Dates: start: 20200930, end: 20201021
  2. PEMBROLIZUMAB. [Suspect]
     Active Substance: PEMBROLIZUMAB
     Indication: CHOLANGIOCARCINOMA
     Dosage: 200MG ON DAY 1, 21D AS 1 CYCLE FOR 2 CYCLES
     Route: 042
     Dates: start: 20181220, end: 20190110
  3. OXALIPLATIN. [Concomitant]
     Active Substance: OXALIPLATIN
     Indication: CHOLANGIOCARCINOMA
     Dosage: 100MG/M2, ON DAY 1, 21D AS 1 CYCLE FOR 2 CYCLES
     Route: 042
     Dates: start: 20181220, end: 20190110
  4. OXALIPLATIN. [Concomitant]
     Active Substance: OXALIPLATIN
     Dosage: 100MG, PERFORMED TWICE
     Dates: start: 20190319, end: 20190416
  5. LENVATINIB MESYLATE [Concomitant]
     Active Substance: LENVATINIB MESYLATE
     Dosage: 12 MILLIGRAM, QD
     Route: 048
     Dates: start: 20200212, end: 20200909
  6. PEMBROLIZUMAB. [Suspect]
     Active Substance: PEMBROLIZUMAB
     Dosage: 200MG ON DAY 1, 21D AS 1 CYCLE FOR 11 CYCLES
     Route: 042
     Dates: start: 20200212, end: 20200909
  7. TORIPALIMAB. [Suspect]
     Active Substance: TORIPALIMAB
     Indication: CHOLANGIOCARCINOMA
     Dosage: 240MG, ON DAY 1, 21D AS 1 CYCLE FOR 2 CYCLES
     Route: 042
     Dates: start: 20200930, end: 20201021
  8. GIMERACIL;OTERACIL;TEGAFUR [Concomitant]
     Active Substance: GIMERACIL\OTERACIL\TEGAFUR
     Indication: CHOLANGIOCARCINOMA
     Dosage: 60MG, BID, PO, ON DAY 1 TO 14, 21D AS 1 CYCLE
     Route: 048
     Dates: start: 20181220, end: 20190102
  9. LENVATINIB MESYLATE [Concomitant]
     Active Substance: LENVATINIB MESYLATE
     Indication: CHOLANGIOCARCINOMA
     Dosage: 12 MILLIGRAM, QD
     Route: 048
     Dates: start: 20190314, end: 20200122
  10. PEMBROLIZUMAB. [Suspect]
     Active Substance: PEMBROLIZUMAB
     Dosage: 200MG ON DAY 1, 21D AS 1 CYCLE FOR 2 CYCLES
     Route: 042
     Dates: start: 20190131, end: 20190221
  11. FLUOROURACIL. [Concomitant]
     Active Substance: FLUOROURACIL
     Dosage: 1 GRAM, PERFORMED TWICE
     Dates: start: 20190319, end: 20190416
  12. PEMBROLIZUMAB. [Suspect]
     Active Substance: PEMBROLIZUMAB
     Dosage: 200MG ON DAY 1, 21D AS 1 CYCLE FOR 16 CYCLES
     Route: 042
     Dates: start: 20190314, end: 20200122
  13. GIMERACIL;OTERACIL;TEGAFUR [Concomitant]
     Active Substance: GIMERACIL\OTERACIL\TEGAFUR
     Dosage: 60MG, BID, PO, ON DAY 1 TO 14, 21D AS 1 CYCLE
     Route: 048
     Dates: start: 20190110, end: 20190123
  14. IPILIMUMAB [Suspect]
     Active Substance: IPILIMUMAB
     Indication: CHOLANGIOCARCINOMA
     Dosage: 50MG, ON DAY 1, 21D AS 1 CYCLE FOR 2 CYCLES
     Route: 042
     Dates: start: 20200930, end: 20201021
  15. OLAPARIB. [Concomitant]
     Active Substance: OLAPARIB
     Indication: CHOLANGIOCARCINOMA
     Dosage: 450 MILLIGRAM, QD
     Route: 048
     Dates: start: 20200212, end: 20200909

REACTIONS (2)
  - Immune-mediated cystitis [Recovered/Resolved]
  - Product use in unapproved indication [Unknown]

NARRATIVE: CASE EVENT DATE: 20181220
